FAERS Safety Report 23645111 (Version 1)
Quarter: 2024Q1

REPORT INFORMATION
  Report Type: Spontaneous
  Country: US (occurrence: US)
  Receive Date: 20240318
  Receipt Date: 20240318
  Transmission Date: 20240410
  Serious: No
  Sender: FDA-Public Use
  Company Number: US-Calliditas-2024CAL00430

PATIENT
  Age: 73 Year
  Sex: Male
  Weight: 87.3 kg

DRUGS (1)
  1. TARPEYO [Suspect]
     Active Substance: BUDESONIDE
     Indication: Haematuria
     Dosage: 16 MG (4 MG CAPSULES) ONCE DAILY
     Route: 048
     Dates: start: 20240228

REACTIONS (7)
  - Oedema peripheral [Recovering/Resolving]
  - Abdominal distension [Unknown]
  - Post-traumatic stress disorder [Unknown]
  - Anxiety [Unknown]
  - Depression [Unknown]
  - Blood pressure increased [Unknown]
  - Off label use [Unknown]
